FAERS Safety Report 17173535 (Version 1)
Quarter: 2019Q4

REPORT INFORMATION
  Report Type: Spontaneous
  Country: US (occurrence: US)
  Receive Date: 20191126
  Receipt Date: 20191126
  Transmission Date: 20200122
  Serious: Yes (Other)
  Sender: FDA-Public Use
  Company Number: None

PATIENT
  Sex: Female
  Weight: 79.38 kg

DRUGS (11)
  1. NIFEDIPINE ERGO [Concomitant]
  2. MULTI VIT [Concomitant]
     Active Substance: VITAMINS
  3. METFORMIN [Suspect]
     Active Substance: METFORMIN HYDROCHLORIDE
     Indication: TYPE 2 DIABETES MELLITUS
     Dates: start: 2004, end: 20170524
  4. CALCIUM [Concomitant]
     Active Substance: CALCIUM
  5. GLIMEPIRIDE. [Concomitant]
     Active Substance: GLIMEPIRIDE
  6. LEVOTHYROXINE. [Concomitant]
     Active Substance: LEVOTHYROXINE
  7. FISH OIL [Concomitant]
     Active Substance: FISH OIL
  8. BABY ASP [Concomitant]
  9. CETIRIZINE [Concomitant]
     Active Substance: CETIRIZINE HYDROCHLORIDE
  10. CITALOPRAM [Concomitant]
     Active Substance: CITALOPRAM HYDROBROMIDE
  11. TRESIBA [Concomitant]
     Active Substance: INSULIN DEGLUDEC

REACTIONS (14)
  - Abdominal pain [None]
  - Arthralgia [None]
  - Rash [None]
  - Treatment failure [None]
  - Vulvovaginal erythema [None]
  - Dehydration [None]
  - Renal disorder [None]
  - Nausea [None]
  - Liver injury [None]
  - Vomiting [None]
  - Diarrhoea [None]
  - Vaginal infection [None]
  - Blister [None]
  - Alopecia [None]
